FAERS Safety Report 9404840 (Version 1)
Quarter: 2013Q3

REPORT INFORMATION
  Report Type: Report from Study
  Country: FR (occurrence: FR)
  Receive Date: 20130717
  Receipt Date: 20130717
  Transmission Date: 20140515
  Serious: Yes (Hospitalization)
  Sender: FDA-Public Use
  Company Number: FR-BAYER-2013-069835

PATIENT
  Age: 62 Year
  Sex: Male

DRUGS (1)
  1. REGORAFENIB [Suspect]
     Indication: COLORECTAL CANCER METASTATIC
     Dosage: 160 MG, QD
     Route: 048
     Dates: start: 20130515, end: 20130527

REACTIONS (3)
  - Vomiting [None]
  - Decreased appetite [Recovering/Resolving]
  - General physical condition abnormal [Recovering/Resolving]
